FAERS Safety Report 7243481-0 (Version None)
Quarter: 2011Q1

REPORT INFORMATION
  Report Type: 
  Country: None (occurrence: None)
  Receive Date: 20110119
  Receipt Date: 20110119
  Transmission Date: 20110831
  Serious: No
  Sender: FDA-Public Use
  Company Number: None

PATIENT
  Age: 60 Year
  Sex: Male
  Weight: 97.5234 kg

DRUGS (4)
  1. ASPIRIN [Concomitant]
  2. ASPIRIN [Concomitant]
  3. PLAVIX [Suspect]
     Indication: STENT PLACEMENT
     Dosage: 75 MG ONCE DAILY PO
     Route: 048
     Dates: start: 20100525, end: 20110115
  4. ETODOLAC [Concomitant]

REACTIONS (6)
  - DRUG INEFFECTIVE [None]
  - IMPAIRED HEALING [None]
  - SKIN HAEMORRHAGE [None]
  - BACK PAIN [None]
  - LACERATION [None]
  - SCRATCH [None]
